FAERS Safety Report 10400220 (Version 1)
Quarter: 2014Q3

REPORT INFORMATION
  Report Type: Spontaneous
  Country: GB (occurrence: GB)
  Receive Date: 20140821
  Receipt Date: 20140821
  Transmission Date: 20150326
  Serious: Yes (Hospitalization, Other)
  Sender: FDA-Public Use
  Company Number: GB-ACTAVISPR-2014-17907

PATIENT
  Sex: Female

DRUGS (1)
  1. DICLOFENAC (UNKNOWN) [Suspect]
     Active Substance: DICLOFENAC SODIUM
     Indication: SCIATICA
     Dosage: UNK
     Route: 064

REACTIONS (4)
  - Ductus arteriosus premature closure [Unknown]
  - Hydrops foetalis [Recovering/Resolving]
  - Foetal exposure during pregnancy [Unknown]
  - Cardiac failure [Recovering/Resolving]
